FAERS Safety Report 7272001-X (Version None)
Quarter: 2011Q1

REPORT INFORMATION
  Report Type: 
  Country: None (occurrence: None)
  Receive Date: 20110203
  Receipt Date: 20110121
  Transmission Date: 20110831
  Serious: Yes (Hospitalization)
  Sender: FDA-Public Use
  Company Number: US-SANOFI-AVENTIS-2011SA005092

PATIENT
  Age: 69 Year
  Sex: Male

DRUGS (20)
  1. ADVAIR [Concomitant]
  2. DEXAMETHASONE [Concomitant]
  3. IPRATROPIUM BROMIDE [Concomitant]
  4. DILTIAZEM [Concomitant]
  5. INSULIN [Concomitant]
  6. LEVOTHYROXINE [Concomitant]
  7. TAMSULOSIN HCL [Concomitant]
  8. ALLOPURINOL [Concomitant]
  9. DIGOXIN [Concomitant]
  10. ROSUVASTATIN [Concomitant]
  11. MULTAQ [Suspect]
     Indication: ATRIAL FIBRILLATION
     Route: 065
     Dates: start: 20101201, end: 20110125
  12. PLAVIX [Concomitant]
  13. LORAZEPAM [Concomitant]
  14. SENNA [Concomitant]
  15. MORPHINE [Concomitant]
  16. SCOPOLAMINE [Concomitant]
  17. ALBUTEROL [Concomitant]
  18. LOSARTAN POTASSIUM [Concomitant]
  19. FUROSEMIDE [Concomitant]
  20. ENOXAPARIN [Concomitant]

REACTIONS (6)
  - DYSPNOEA [None]
  - THROAT TIGHTNESS [None]
  - DISEASE PROGRESSION [None]
  - APHASIA [None]
  - PLEURAL EFFUSION [None]
  - PAIN [None]
